FAERS Safety Report 4917662-2 (Version None)
Quarter: 2006Q1

REPORT INFORMATION
  Report Type: 
  Country: None (occurrence: None)
  Receive Date: 20060215
  Receipt Date: 20060201
  Transmission Date: 20060701
  Serious: Yes (Hospitalization)
  Sender: FDA-Public Use
  Company Number: US016756

PATIENT
  Age: 23 Year
  Sex: Male
  Weight: 148.7798 kg

DRUGS (1)
  1. TIAGABINE HCL [Suspect]
     Indication: GENERALISED ANXIETY DISORDER
     Dosage: 6 MG BID ORAL
     Route: 048
     Dates: start: 20060104, end: 20060127

REACTIONS (14)
  - AGITATION [None]
  - ASTHENIA [None]
  - COMPLEX PARTIAL SEIZURES [None]
  - CONFUSIONAL STATE [None]
  - DELIRIUM [None]
  - DISORIENTATION [None]
  - DIZZINESS [None]
  - DYSKINESIA [None]
  - DYSSTASIA [None]
  - EYE MOVEMENT DISORDER [None]
  - HYPERHIDROSIS [None]
  - MEMORY IMPAIRMENT [None]
  - TREMOR [None]
  - VOMITING [None]
